FAERS Safety Report 8517049-X (Version None)
Quarter: 2012Q3

REPORT INFORMATION
  Report Type: 
  Country: None (occurrence: None)
  Receive Date: 20120706
  Receipt Date: 20120625
  Transmission Date: 20120928
  Serious: Yes (Other)
  Sender: FDA-Public Use
  Company Number: 2012P1046550

PATIENT
  Sex: Female

DRUGS (1)
  1. HEPARIN [Suspect]
     Indication: INTRACRANIAL VENOUS SINUS THROMBOSIS
     Dosage: 80 U/KG;X1;IV ; 18 U/KG;QH;IV
     Route: 042

REACTIONS (3)
  - WHITE CLOT SYNDROME [None]
  - THALAMIC INFARCTION [None]
  - THROMBOCYTOPENIA [None]
